FAERS Safety Report 5489438-1 (Version None)
Quarter: 2007Q4

REPORT INFORMATION
  Report Type: 
  Country: None (occurrence: None)
  Receive Date: 20071016
  Receipt Date: 20071016
  Transmission Date: 20080405
  Serious: Yes (Other)
  Sender: FDA-Public Use
  Company Number: None

PATIENT
  Age: 64 Year
  Sex: Female
  Weight: 56.6996 kg

DRUGS (2)
  1. MINOCYCLINE 100 MG  OHM-RANBAXY [Suspect]
     Indication: RHEUMATOID ARTHRITIS
     Dosage: ONE  TWICE A DAY  PO
     Route: 048
     Dates: start: 20030101, end: 20030401
  2. MINOCYCLINE 100 MG  OHM-RANBAXY [Suspect]
     Indication: RHEUMATOID ARTHRITIS
     Dosage: ONE  TWICE A DAY  PO
     Route: 048
     Dates: start: 20060115, end: 20060401

REACTIONS (6)
  - DRUG INEFFECTIVE [None]
  - INFLAMMATION [None]
  - PAIN [None]
  - PHARMACEUTICAL PRODUCT COMPLAINT [None]
  - RASH [None]
  - REACTION TO DRUG EXCIPIENTS [None]
